FAERS Safety Report 17033617 (Version 1)
Quarter: 2019Q4

REPORT INFORMATION
  Report Type: Report from Study
  Country: ES (occurrence: ES)
  Receive Date: 20191114
  Receipt Date: 20191114
  Transmission Date: 20200122
  Serious: Yes (Hospitalization, Disabling, Other)
  Sender: FDA-Public Use
  Company Number: ES-JNJFOC-20190308352

PATIENT
  Age: 82 Year
  Sex: Female

DRUGS (3)
  1. RIVAROXABAN [Concomitant]
     Active Substance: RIVAROXABAN
     Indication: ARRHYTHMIA
  2. RIVAROXABAN [Concomitant]
     Active Substance: RIVAROXABAN
     Indication: ATRIAL FIBRILLATION
     Route: 065
  3. IBRUTINIB [Suspect]
     Active Substance: IBRUTINIB
     Indication: CHRONIC LYMPHOCYTIC LEUKAEMIA
     Route: 048
     Dates: start: 20170206, end: 20181102

REACTIONS (5)
  - Subdural haematoma [Not Recovered/Not Resolved]
  - General physical health deterioration [Recovered/Resolved with Sequelae]
  - Infection [Recovered/Resolved with Sequelae]
  - Herpes simplex oesophagitis [Recovered/Resolved]
  - Oesophageal candidiasis [Recovered/Resolved]

NARRATIVE: CASE EVENT DATE: 20181030
